FAERS Safety Report 7538063-7 (Version None)
Quarter: 2011Q2

REPORT INFORMATION
  Report Type: 
  Country: None (occurrence: None)
  Receive Date: 20110609
  Receipt Date: 20110608
  Transmission Date: 20111010
  Serious: Yes (Death)
  Sender: FDA-Public Use
  Company Number: VE-PFIZER INC-2011121042

PATIENT
  Age: 59 Year
  Sex: Male

DRUGS (1)
  1. LIPITOR [Suspect]
     Indication: CARDIAC DISORDER
     Dosage: UNK
     Route: 048

REACTIONS (1)
  - MYOCARDIAL INFARCTION [None]
